FAERS Safety Report 20959937 (Version 2)
Quarter: 2022Q2

REPORT INFORMATION
  Report Type: Spontaneous
  Country: CZ (occurrence: CZ)
  Receive Date: 20220615
  Receipt Date: 20220627
  Transmission Date: 20220720
  Serious: Yes (Hospitalization, Other)
  Sender: FDA-Public Use
  Company Number: CZ-BoehringerIngelheim-2022-BI-174911

PATIENT
  Age: 69 Year
  Sex: Female

DRUGS (1)
  1. DABIGATRAN [Suspect]
     Active Substance: DABIGATRAN
     Indication: Atrial fibrillation

REACTIONS (5)
  - Periprosthetic fracture [Recovered/Resolved]
  - Shock haemorrhagic [Recovered/Resolved]
  - Acute kidney injury [Recovered/Resolved]
  - Fall [Recovered/Resolved]
  - Haemorrhage [Recovered/Resolved]

NARRATIVE: CASE EVENT DATE: 20200101
